FAERS Safety Report 8924139 (Version 1)
Quarter: 2012Q4

REPORT INFORMATION
  Report Type: 
  Country: US (occurrence: US)
  Receive Date: 20121126
  Receipt Date: 20121126
  Transmission Date: 20130627
  Serious: Yes (Hospitalization)
  Sender: FDA-Public Use
  Company Number: US-GLAXOSMITHKLINE-A0769360A

PATIENT
  Age: 64 Year
  Sex: Male
  Weight: 92.6 kg

DRUGS (4)
  1. AVANDIA [Suspect]
     Indication: TYPE 2 DIABETES MELLITUS
     Dosage: 4MG Per day
     Route: 048
     Dates: start: 200511, end: 200704
  2. METFORMIN [Concomitant]
  3. GLIPIZIDE [Concomitant]
  4. NOVOLIN [Concomitant]

REACTIONS (5)
  - Myocardial infarction [Not Recovered/Not Resolved]
  - Retinopathy [Unknown]
  - Coronary artery disease [Unknown]
  - Arteriosclerosis [Unknown]
  - Cardiovascular disorder [Unknown]
